FAERS Safety Report 10641648 (Version 1)
Quarter: 2014Q4

REPORT INFORMATION
  Report Type: Spontaneous
  Country: US (occurrence: US)
  Receive Date: 20141209
  Receipt Date: 20141209
  Transmission Date: 20150529
  Serious: Yes (Other)
  Sender: FDA-Public Use
  Company Number: CHPA2014US016057

PATIENT
  Sex: Female

DRUGS (1)
  1. PRIVATE LABEL STEP 1 21MG ACCT UNKNOWN [Suspect]
     Active Substance: NICOTINE
     Indication: SMOKING CESSATION THERAPY
     Dosage: 21 MG, UNK
     Route: 062
     Dates: start: 20141128, end: 20141130

REACTIONS (8)
  - Palpitations [Recovered/Resolved]
  - Wrong technique in drug usage process [Unknown]
  - Cold sweat [Unknown]
  - Tobacco poisoning [Unknown]
  - Feeling jittery [Recovering/Resolving]
  - Pallor [Recovered/Resolved]
  - Nausea [Unknown]
  - Vomiting [Recovered/Resolved]

NARRATIVE: CASE EVENT DATE: 20141128
